FAERS Safety Report 16878186 (Version 1)
Quarter: 2019Q4

REPORT INFORMATION
  Report Type: Spontaneous
  Country: US (occurrence: US)
  Receive Date: 20191002
  Receipt Date: 20191002
  Transmission Date: 20200122
  Serious: No
  Sender: FDA-Public Use
  Company Number: US-BAUSCH-BL-2019-055314

PATIENT
  Age: 65 Year
  Sex: Female
  Weight: 90.8 kg

DRUGS (1)
  1. XIFAXAN [Suspect]
     Active Substance: RIFAXIMIN
     Indication: IRRITABLE BOWEL SYNDROME
     Route: 065
     Dates: start: 2019, end: 2019

REACTIONS (7)
  - Symptom recurrence [Not Recovered/Not Resolved]
  - Therapy cessation [Unknown]
  - Irritable bowel syndrome [Not Recovered/Not Resolved]
  - Weight decreased [Unknown]
  - Product use complaint [Unknown]
  - Inability to afford medication [Unknown]
  - Product size issue [Unknown]

NARRATIVE: CASE EVENT DATE: 2019
